FAERS Safety Report 5723015-X (Version None)
Quarter: 2008Q2

REPORT INFORMATION
  Report Type: 
  Country: None (occurrence: None)
  Receive Date: 20080428
  Receipt Date: 20080428
  Transmission Date: 20081010
  Serious: No
  Sender: FDA-Public Use
  Company Number: None

PATIENT
  Sex: Female
  Weight: 68.0396 kg

DRUGS (5)
  1. ACTOS [Suspect]
     Dosage: QD PO
     Route: 048
     Dates: start: 20071127, end: 20071127
  2. EVISTA [Suspect]
     Dosage: QD PO
     Route: 048
     Dates: start: 20071004, end: 20071016
  3. LIPITOR [Concomitant]
  4. SKIN CREAM [Concomitant]
  5. EYE DROPS [Concomitant]

REACTIONS (1)
  - DRUG INEFFECTIVE [None]
